FAERS Safety Report 10018422 (Version 1)
Quarter: 2014Q1

REPORT INFORMATION
  Report Type: Spontaneous
  Country: US (occurrence: None)
  Receive Date: 20140314
  Receipt Date: 20140314
  Transmission Date: 20141002
  Serious: Yes (Other)
  Sender: FDA-Public Use
  Company Number: None

PATIENT
  Age: 11 Month
  Sex: Female
  Weight: 10.89 kg

DRUGS (1)
  1. CEFDINIR [Suspect]
     Indication: OTITIS MEDIA
     Route: 048
     Dates: start: 20140310, end: 20140313

REACTIONS (3)
  - Vomiting projectile [None]
  - Diarrhoea [None]
  - Gastric disorder [None]
